FAERS Safety Report 5140886-9 (Version None)
Quarter: 2006Q4

REPORT INFORMATION
  Report Type: 
  Country: None (occurrence: None)
  Receive Date: 20060905
  Receipt Date: 20060706
  Transmission Date: 20070319
  Serious: No
  Sender: FDA-Public Use
  Company Number: 06P-163-0337694-00

PATIENT
  Sex: Male

DRUGS (2)
  1. TRICOR [Suspect]
     Dosage: 145 MG, 1 IN 1 D, PER ORAL
     Route: 048
  2. ZOCOR [Concomitant]

REACTIONS (1)
  - RHABDOMYOLYSIS [None]
